FAERS Safety Report 8602705-5 (Version None)
Quarter: 2012Q2

REPORT INFORMATION
  Report Type: 
  Country: None (occurrence: None)
  Receive Date: 20120423
  Receipt Date: 20080918
  Transmission Date: 20120825
  Serious: Yes (Other)
  Sender: FDA-Public Use
  Company Number: PHEH2008US08386

PATIENT
  Sex: Female

DRUGS (1)
  1. FEMARA [Suspect]
     Dosage: UNK
     Dates: start: 20080701

REACTIONS (6)
  - PARAESTHESIA [None]
  - CATARACT [None]
  - PAIN IN EXTREMITY [None]
  - HOT FLUSH [None]
  - FATIGUE [None]
  - OEDEMA PERIPHERAL [None]
